FAERS Safety Report 13274189 (Version 1)
Quarter: 2017Q1

REPORT INFORMATION
  Report Type: Spontaneous
  Country: US (occurrence: US)
  Receive Date: 20170227
  Receipt Date: 20170227
  Transmission Date: 20170428
  Serious: No
  Sender: FDA-Public Use
  Company Number: US-BAYER-2017-034054

PATIENT
  Age: 48 Year
  Sex: Female

DRUGS (1)
  1. CLIMARA PRO [Suspect]
     Active Substance: ESTRADIOL\LEVONORGESTREL
     Indication: HORMONE REPLACEMENT THERAPY
     Dosage: UNK, OW
     Route: 062
     Dates: start: 201608

REACTIONS (4)
  - Product use issue [None]
  - Application site irritation [None]
  - Device use error [None]
  - Product adhesion issue [None]

NARRATIVE: CASE EVENT DATE: 201608
